FAERS Safety Report 4674955-4 (Version None)
Quarter: 2005Q2

REPORT INFORMATION
  Report Type: 
  Country: None (occurrence: None)
  Receive Date: 20050525
  Receipt Date: 20050512
  Transmission Date: 20051028
  Serious: Yes (Disabling, Other)
  Sender: FDA-Public Use
  Company Number: 2005074797

PATIENT
  Sex: Female
  Weight: 72.5755 kg

DRUGS (1)
  1. BENADRYL [Suspect]
     Indication: INSOMNIA
     Dosage: 1 SOFTGEL QD, ORAL
     Route: 048
     Dates: start: 20000101

REACTIONS (5)
  - ABDOMINAL PAIN LOWER [None]
  - BURSITIS [None]
  - DIFFICULTY IN WALKING [None]
  - DYSSTASIA [None]
  - GENITAL PAIN [None]
